FAERS Safety Report 16825758 (Version 2)
Quarter: 2019Q3

REPORT INFORMATION
  Report Type: Spontaneous
  Country: PT (occurrence: PT)
  Receive Date: 20190919
  Receipt Date: 20190926
  Transmission Date: 20191005
  Serious: No
  Sender: FDA-Public Use
  Company Number: PT-TEVA-2019-PT-1109006

PATIENT
  Age: 55 Year
  Sex: Female
  Weight: 60 kg

DRUGS (5)
  1. FOLICIL [Concomitant]
     Active Substance: FOLIC ACID
     Route: 048
  2. OVESTIN [Concomitant]
     Active Substance: ESTRIOL
     Route: 067
  3. CARVEDILOL. [Suspect]
     Active Substance: CARVEDILOL
     Dosage: 2 PER DAY; 50 MG
     Route: 048
  4. LISINOPRIL. [Concomitant]
     Active Substance: LISINOPRIL
     Route: 048
  5. GENVOYA [Interacting]
     Active Substance: COBICISTAT\ELVITEGRAVIR\EMTRICITABINE\TENOFOVIR ALAFENAMIDE FUMARATE
     Indication: HIV INFECTION
     Dosage: 1 COMP / DAY
     Route: 048
     Dates: start: 20190626, end: 20190701

REACTIONS (4)
  - Chest discomfort [Recovered/Resolved]
  - Drug interaction [Recovered/Resolved]
  - Asthenia [Recovered/Resolved]
  - Headache [Recovered/Resolved]

NARRATIVE: CASE EVENT DATE: 20190626
